FAERS Safety Report 5641375-5 (Version None)
Quarter: 2008Q1

REPORT INFORMATION
  Report Type: 
  Country: None (occurrence: None)
  Receive Date: 20080227
  Receipt Date: 20070725
  Transmission Date: 20080703
  Serious: No
  Sender: FDA-Public Use
  Company Number: A0662695A

PATIENT

DRUGS (1)
  1. NICORETTE [Suspect]
     Indication: DRUG USE FOR UNKNOWN INDICATION
     Route: 002

REACTIONS (5)
  - CHEMICAL POISONING [None]
  - DIARRHOEA [None]
  - DIZZINESS [None]
  - MALAISE [None]
  - STOMACH DISCOMFORT [None]
